FAERS Safety Report 4428056-0 (Version None)
Quarter: 2004Q3

REPORT INFORMATION
  Report Type: 
  Country: None (occurrence: None)
  Receive Date: 20040817
  Receipt Date: 20040810
  Transmission Date: 20050211
  Serious: Yes (Hospitalization)
  Sender: FDA-Public Use
  Company Number: DE-MERCK-0408DEU00055

PATIENT
  Age: 41 Year
  Sex: Male
  Weight: 90 kg

DRUGS (5)
  1. BUDESONIDE [Concomitant]
     Route: 065
  2. FORMOTEROL FUMARATE [Concomitant]
     Route: 065
  3. PANTOPRAZOLE SODIUM [Concomitant]
     Route: 065
  4. VIOXX [Suspect]
     Indication: ANKYLOSING SPONDYLITIS
     Route: 048
     Dates: start: 20030101
  5. THEOPHYLLINE [Concomitant]
     Route: 065

REACTIONS (14)
  - ABDOMINAL PAIN [None]
  - ANAL HAEMORRHAGE [None]
  - ASTHMA [None]
  - BLOOD IMMUNOGLOBULIN E INCREASED [None]
  - BRONCHITIS BACTERIAL [None]
  - BRONCHOPULMONARY ASPERGILLOSIS [None]
  - CONDITION AGGRAVATED [None]
  - DIVERTICULUM [None]
  - ENTEROCOLITIS [None]
  - GASTROINTESTINAL DISORDER [None]
  - ILEITIS [None]
  - RESPIRATORY DISORDER [None]
  - STAPHYLOCOCCAL INFECTION [None]
  - VARICOSE VEIN [None]
